FAERS Safety Report 6615469-1 (Version None)
Quarter: 2010Q1

REPORT INFORMATION
  Report Type: 
  Country: None (occurrence: None)
  Receive Date: 20100305
  Receipt Date: 20100226
  Transmission Date: 20100710
  Serious: Yes (Hospitalization)
  Sender: FDA-Public Use
  Company Number: US-ASTRAZENECA-2010SE08558

PATIENT
  Sex: Female

DRUGS (3)
  1. SEROQUEL XR [Suspect]
     Indication: MAJOR DEPRESSION
     Route: 048
     Dates: start: 20080101
  2. SEROQUEL XR [Suspect]
     Indication: BIPOLAR I DISORDER
     Route: 048
     Dates: start: 20080101
  3. LITHIUM [Concomitant]
     Route: 065

REACTIONS (3)
  - DEPRESSION [None]
  - DRUG EFFECT DECREASED [None]
  - WEIGHT INCREASED [None]
